FAERS Safety Report 23035993 (Version 1)
Quarter: 2023Q4

REPORT INFORMATION
  Report Type: Spontaneous
  Country: US (occurrence: US)
  Receive Date: 20231006
  Receipt Date: 20231006
  Transmission Date: 20240109
  Serious: Yes (Other)
  Sender: FDA-Public Use
  Company Number: US-BRISTOL-MYERS SQUIBB COMPANY-2023-141625

PATIENT
  Age: 66 Year
  Sex: Female

DRUGS (5)
  1. REVLIMID [Suspect]
     Active Substance: LENALIDOMIDE
     Indication: Plasma cell myeloma
     Dosage: TAKE 1 CAPSULE BY MOUTH EVERY DAY
     Route: 048
     Dates: start: 20170715
  2. FISH OIL [Concomitant]
     Active Substance: FISH OIL
     Indication: Product used for unknown indication
  3. VITAMINS NOS [Concomitant]
     Active Substance: VITAMINS
     Indication: Product used for unknown indication
  4. POTASSIUM CHLORIDE [Concomitant]
     Active Substance: POTASSIUM CHLORIDE
     Indication: Product used for unknown indication
     Dosage: TABLET ER
  5. ASCORBIC ACID [Concomitant]
     Active Substance: ASCORBIC ACID
     Indication: Product used for unknown indication

REACTIONS (6)
  - Thrombocytopenia [Unknown]
  - Osteonecrosis of jaw [Unknown]
  - Metastases to bone [Unknown]
  - Gastrooesophageal reflux disease [Unknown]
  - Diarrhoea [Unknown]
  - Upper respiratory tract infection [Unknown]
